FAERS Safety Report 23472188 (Version 1)
Quarter: 2024Q1

REPORT INFORMATION
  Report Type: Spontaneous
  Country: GB (occurrence: None)
  Receive Date: 20240202
  Receipt Date: 20240202
  Transmission Date: 20240410
  Serious: Yes (Other)
  Sender: FDA-Public Use
  Company Number: 2021A167197

PATIENT
  Age: 62 Year
  Sex: Male
  Weight: 84 kg

DRUGS (5)
  1. ESOMEPRAZOLE [Suspect]
     Active Substance: ESOMEPRAZOLE
     Indication: Ill-defined disorder
     Route: 048
     Dates: start: 20210316
  2. CIMETIDINE [Concomitant]
     Active Substance: CIMETIDINE
     Indication: Ill-defined disorder
     Dosage: 10ML DAILY. (TABLETS OUT OF STOCK)
     Route: 065
     Dates: start: 20200709, end: 20210224
  3. ESOMEPRAZOLE [Concomitant]
     Active Substance: ESOMEPRAZOLE
     Indication: Ill-defined disorder
     Dosage: TAKE ONE TWICE DAILY
     Route: 065
     Dates: start: 20210128
  4. OMEPRAZOLE [Concomitant]
     Active Substance: OMEPRAZOLE
     Indication: Ill-defined disorder
     Dosage: TAKE TWO DAILY TO REDUCE STOMACH ACID
     Route: 065
     Dates: start: 20210316
  5. PANTOPRAZOLE [Concomitant]
     Active Substance: PANTOPRAZOLE
     Indication: Ill-defined disorder
     Dosage: ONE A DAY HALF AN HOUR BEFORE BREAKFAST
     Route: 065
     Dates: start: 20190930, end: 20210128

REACTIONS (2)
  - Rash [Unknown]
  - Adverse drug reaction [Unknown]

NARRATIVE: CASE EVENT DATE: 20210316
